FAERS Safety Report 22023155 (Version 1)
Quarter: 2023Q1

REPORT INFORMATION
  Report Type: Spontaneous
  Country: CN (occurrence: CN)
  Receive Date: 20230223
  Receipt Date: 20230223
  Transmission Date: 20230418
  Serious: Yes (Other)
  Sender: FDA-Public Use
  Company Number: None

PATIENT
  Age: 74 Year
  Sex: Female
  Weight: 52 kg

DRUGS (8)
  1. CYCLOPHOSPHAMIDE [Suspect]
     Active Substance: CYCLOPHOSPHAMIDE
     Indication: Hormone receptor positive breast cancer
     Dosage: 0.8 G, QD, D1 (DILUTED WITH NORMAL SALINE (NS) 50 ML, PALLIATIVE CHEMOTHERAPY)
     Route: 042
     Dates: start: 20221202, end: 20221202
  2. CYCLOPHOSPHAMIDE [Suspect]
     Active Substance: CYCLOPHOSPHAMIDE
     Indication: Breast cancer stage IV
  3. CYCLOPHOSPHAMIDE [Suspect]
     Active Substance: CYCLOPHOSPHAMIDE
     Indication: Adjuvant therapy
  4. SODIUM CHLORIDE [Suspect]
     Active Substance: SODIUM CHLORIDE
     Indication: Medication dilution
     Dosage: 50 ML, QD, D1 (USED TO DILUTE 0.8G CYCLOPHOSPHAMIDE, PALLIATIVE CHEMOTHERAPY
     Route: 042
     Dates: start: 20221202, end: 20221202
  5. DEXTROSE [Suspect]
     Active Substance: DEXTROSE
     Indication: Medication dilution
     Dosage: 250 ML, D1, STRENGTH: 5% (USED TO DILUTE DOXORUBICIN HYDROCHLORIDE LIPOSOME 20 MG, PALLIATIVE CHEMOT
     Route: 041
     Dates: start: 20221202, end: 20221202
  6. DEXTROSE [Suspect]
     Active Substance: DEXTROSE
     Dosage: 250 ML, D1, STRENGTH: 5% (USED TO DILUTE DOXORUBICIN HYDROCHLORIDE LIPOSOME 20 MG, PALLIATIVE CHEMOT
     Route: 041
     Dates: start: 20221202, end: 20221202
  7. DOXORUBICIN HYDROCHLORIDE [Suspect]
     Active Substance: DOXORUBICIN HYDROCHLORIDE
     Indication: Hormone receptor positive breast cancer
     Dosage: 20 MG, D1 (DILUTED WITH 5% GLUCOSE 250 ML, PALLIATIVE CHEMOTHERAPY)
     Route: 041
     Dates: start: 20221202, end: 20221202
  8. DOXORUBICIN HYDROCHLORIDE [Suspect]
     Active Substance: DOXORUBICIN HYDROCHLORIDE
     Indication: Breast cancer stage IV
     Dosage: 20 MG, D1 (DILUTED WITH 5% GLUCOSE 250 ML, PALLIATIVE CHEMOTHERAPY)
     Route: 041
     Dates: start: 20221202, end: 20221202

REACTIONS (1)
  - Myelosuppression [Recovered/Resolved]

NARRATIVE: CASE EVENT DATE: 20221224
